FAERS Safety Report 9385113 (Version 1)
Quarter: 2013Q3

REPORT INFORMATION
  Report Type: Spontaneous
  Country: GB (occurrence: None)
  Receive Date: 20130701
  Receipt Date: 20130701
  Transmission Date: 20140515
  Serious: Yes (Other)
  Sender: FDA-Public Use
  Company Number: GER/UKI/13/0030216

PATIENT
  Age: 67 Year
  Sex: Male
  Weight: 79.82 kg

DRUGS (6)
  1. CIPROFLOXACIN (CIPROFLOXACIN) [Suspect]
     Indication: PRODUCT USED FOR UNKNOWN INDICATION
     Dates: start: 20130607, end: 20130610
  2. ADIZEM-SR (DILTIAZEM HYDROCHLORIDE) [Concomitant]
  3. AMOXICILLIN (AMOXICILLIN) [Concomitant]
  4. BISOPROLOL (BISOPROLOL) [Concomitant]
  5. RAMIPRIL (RAMIPRIL) [Concomitant]
  6. ROSUVATATIN (ROSUVASTATIN) [Concomitant]

REACTIONS (2)
  - Rash [None]
  - Skin reaction [None]
